FAERS Safety Report 8229577-5 (Version None)
Quarter: 2012Q1

REPORT INFORMATION
  Report Type: 
  Country: None (occurrence: None)
  Receive Date: 20120322
  Receipt Date: 20120313
  Transmission Date: 20120608
  Serious: Yes (Hospitalization)
  Sender: FDA-Public Use
  Company Number: US-ASTRAZENECA-2011SE67230

PATIENT
  Age: 73 Year
  Sex: Female
  Weight: 88.7 kg

DRUGS (9)
  1. ALBUTEROL [Concomitant]
     Indication: WHEEZING
     Route: 065
  2. HYDROCHLOROTHIAZIDE [Concomitant]
     Route: 048
  3. SYMBICORT [Suspect]
     Dosage: 160/4.5 ?G  2 PUFF BID
     Route: 055
  4. LEVOXYL [Concomitant]
     Route: 048
  5. ZOCOR [Concomitant]
     Route: 048
  6. NORVASC [Concomitant]
     Route: 048
  7. VITAMIN D [Concomitant]
     Route: 048
  8. NEXIUM [Suspect]
     Route: 048
  9. VITAMIN-MINERAL COMPOUND TAB [Concomitant]
     Route: 048

REACTIONS (6)
  - COUGH [None]
  - BONE CYST [None]
  - ASTHMA [None]
  - UPPER-AIRWAY COUGH SYNDROME [None]
  - SINUS CONGESTION [None]
  - HEADACHE [None]
